FAERS Safety Report 8094195 (Version 3)
Quarter: 2012Q4

REPORT INFORMATION
  Report Type: 
  Country: US (occurrence: US)
  Receive Date: 20110817
  Receipt Date: 20121101
  Transmission Date: 20130627
  Serious: Yes (Hospitalization)
  Sender: FDA-Public Use
  Company Number: US-GLAXOSMITHKLINE-A0941262A

PATIENT
  Age: 76 Year
  Sex: Female
  Weight: 58.4 kg

DRUGS (21)
  1. MELPHALAN [Suspect]
     Indication: CHEMOTHERAPY
     Dosage: 40MG Unknown
     Route: 065
  2. VELCADE [Suspect]
     Indication: PRODUCT USED FOR UNKNOWN INDICATION
     Route: 065
  3. PREDNISONE [Suspect]
     Indication: THERAPEUTIC PROCEDURE
     Dosage: 90MG See dosage text
     Route: 065
  4. AMITIZA [Concomitant]
  5. BABY ASPIRIN [Concomitant]
     Dosage: 81MG Per day
  6. AZOR (ALPRAZOLAM) [Concomitant]
  7. BIAXIN [Concomitant]
  8. CALTRATE [Concomitant]
  9. CARBIDOPA/LEVODOPA [Concomitant]
     Dosage: 2TAB After meals
  10. HCTZ [Concomitant]
     Dosage: 12.5MG Per day
  11. LEVEMIR [Concomitant]
     Dosage: 10UNIT In the morning
     Route: 058
  12. METAMUCIL [Concomitant]
  13. METOPROLOL [Concomitant]
     Dosage: 50MG Twice per day
  14. MIRALAX [Concomitant]
  15. SIMVASTATIN [Concomitant]
     Dosage: 40MG Per day
  16. BORTEZOMIB [Concomitant]
  17. INVESTIGATIONAL DRUG [Concomitant]
  18. ONDANSETRON [Concomitant]
  19. ESTRACE [Concomitant]
     Route: 067
  20. HUMALOG [Concomitant]
  21. CHEMOTHERAPEUTICS NOS [Concomitant]
     Indication: MULTIPLE MYELOMA

REACTIONS (7)
  - Haematochezia [Recovered/Resolved]
  - Gastrointestinal haemorrhage [Unknown]
  - Haemoglobin decreased [Unknown]
  - Duodenitis [Unknown]
  - Haemorrhoids [Unknown]
  - Haemorrhoidal haemorrhage [Unknown]
  - Abdominal pain lower [Unknown]
